FAERS Safety Report 10239299 (Version 1)
Quarter: 2014Q2

REPORT INFORMATION
  Report Type: Spontaneous
  Country: US (occurrence: US)
  Receive Date: 20140616
  Receipt Date: 20140616
  Transmission Date: 20141212
  Serious: No
  Sender: FDA-Public Use
  Company Number: US-ASTRAZENECA-2014SE39611

PATIENT
  Age: 51 Year
  Sex: Female
  Weight: 83.9 kg

DRUGS (4)
  1. ANASTROZOLE [Suspect]
     Indication: BREAST CANCER STAGE I
     Route: 048
     Dates: start: 2011
  2. TAMOXIFEN [Suspect]
     Indication: BREAST CANCER STAGE I
     Route: 048
     Dates: start: 2009, end: 2011
  3. BABY ASPIRIN [Concomitant]
     Route: 048
  4. OSCAL [Concomitant]
     Dosage: DAILY
     Route: 048

REACTIONS (3)
  - Vitamin D decreased [Unknown]
  - Arthralgia [Not Recovered/Not Resolved]
  - Fatigue [Not Recovered/Not Resolved]
